FAERS Safety Report 16689515 (Version 1)
Quarter: 2019Q3

REPORT INFORMATION
  Report Type: Spontaneous
  Country: US (occurrence: US)
  Receive Date: 20190809
  Receipt Date: 20190809
  Transmission Date: 20191004
  Serious: No
  Sender: FDA-Public Use
  Company Number: US-SA-2019SA210816

PATIENT
  Age: 61 Year
  Sex: Female

DRUGS (23)
  1. ARMOUR THYROID [Concomitant]
     Active Substance: THYROID, PORCINE
  2. POTASSIUM [Concomitant]
     Active Substance: POTASSIUM
  3. COENZYME Q10 [Concomitant]
     Active Substance: UBIDECARENONE
  4. METOPROLOL. [Concomitant]
     Active Substance: METOPROLOL
  5. ATORVASTATIN CALCIUM. [Concomitant]
     Active Substance: ATORVASTATIN CALCIUM
  6. IMDUR [Concomitant]
     Active Substance: ISOSORBIDE MONONITRATE
  7. TRAZODONE [Concomitant]
     Active Substance: TRAZODONE HYDROCHLORIDE
  8. LEXAPRO [Concomitant]
     Active Substance: ESCITALOPRAM OXALATE
  9. ZETIA [Concomitant]
     Active Substance: EZETIMIBE
  10. SYMBICORT [Concomitant]
     Active Substance: BUDESONIDE\FORMOTEROL FUMARATE DIHYDRATE
  11. PLAVIX [Concomitant]
     Active Substance: CLOPIDOGREL BISULFATE
  12. ASPIRIN [ACETYLSALICYLIC ACID] [Concomitant]
     Active Substance: ASPIRIN
  13. TRAMADOL. [Concomitant]
     Active Substance: TRAMADOL
  14. PRALUENT [Suspect]
     Active Substance: ALIROCUMAB
     Indication: ARTERIOSCLEROSIS
     Dosage: 75 MG, QOW
     Route: 058
     Dates: start: 20190711
  15. PROGESTERONE. [Concomitant]
     Active Substance: PROGESTERONE
  16. ZOFRAN [Concomitant]
     Active Substance: ONDANSETRON HYDROCHLORIDE
  17. PROAIR HFA [Concomitant]
     Active Substance: ALBUTEROL SULFATE
  18. LISINOPRIL. [Concomitant]
     Active Substance: LISINOPRIL
  19. LIPOTROPIC ADJUNCT [Concomitant]
  20. NITROGLYCERIN. [Concomitant]
     Active Substance: NITROGLYCERIN
  21. LASIX [Concomitant]
     Active Substance: FUROSEMIDE
  22. FISH OIL [Concomitant]
     Active Substance: FISH OIL
  23. VITAMIN D3 [Concomitant]
     Active Substance: CHOLECALCIFEROL

REACTIONS (1)
  - Injection site bruising [Unknown]
